FAERS Safety Report 9999625 (Version 2)
Quarter: 2014Q1

REPORT INFORMATION
  Report Type: Spontaneous
  Country: US (occurrence: None)
  Receive Date: 20140310
  Receipt Date: 20140319
  Transmission Date: 20141002
  Serious: Yes (Disabling, Other)
  Sender: FDA-Public Use
  Company Number: 2212477

PATIENT
  Age: 72 Year
  Sex: Female
  Weight: 53.63 kg

DRUGS (9)
  1. HYDROMORPHONE HYDROCHLORIDE [Suspect]
     Indication: BACK PAIN
     Route: 041
     Dates: start: 201209
  2. HYDROMORPHONE HYDROCHLORIDE [Suspect]
     Indication: INTERVERTEBRAL DISC PROTRUSION
     Route: 041
     Dates: start: 201209
  3. LIPITOR [Concomitant]
  4. LEVOTHYROXINE [Concomitant]
  5. CELEBREX [Concomitant]
  6. FLUOXETINE [Concomitant]
  7. NIFEDIPINE [Concomitant]
  8. NIFEDICAL [Concomitant]
  9. ALEVE [Concomitant]

REACTIONS (9)
  - Influenza like illness [None]
  - Hypersomnia [None]
  - Weight decreased [None]
  - Pyrexia [None]
  - Asthenia [None]
  - Fatigue [None]
  - Aphagia [None]
  - Malaise [None]
  - Hallucination [None]
